FAERS Safety Report 9149396 (Version 1)
Quarter: 2013Q1

REPORT INFORMATION
  Report Type: Report from Study
  Country: US (occurrence: US)
  Receive Date: 20130308
  Receipt Date: 20130308
  Transmission Date: 20140127
  Serious: Yes (Hospitalization, Other)
  Sender: FDA-Public Use
  Company Number: US-ABBOTT-13P-163-1056842-00

PATIENT
  Age: 40 Year
  Sex: Female

DRUGS (7)
  1. HUMIRA [Suspect]
     Indication: CROHN^S DISEASE
  2. AMARYL [Concomitant]
     Indication: BLOOD GLUCOSE ABNORMAL
     Dosage: AT BEDTIME
  3. NOVALOG [Concomitant]
     Indication: BLOOD GLUCOSE ABNORMAL
     Dosage: SLIDING SCALE
  4. LEVEMIR [Concomitant]
     Indication: PRODUCT USED FOR UNKNOWN INDICATION
     Dosage: AT BEDTIME
  5. CELEXA [Concomitant]
     Indication: PRODUCT USED FOR UNKNOWN INDICATION
     Dosage: EVERY DAY
  6. PREMARIN [Concomitant]
     Indication: PRODUCT USED FOR UNKNOWN INDICATION
     Dosage: AT BEDTIME
  7. PROGESTERONE [Concomitant]
     Indication: PRODUCT USED FOR UNKNOWN INDICATION
     Dosage: AT BEDTIME

REACTIONS (19)
  - Cyst [Recovered/Resolved]
  - Hysterectomy [Recovered/Resolved]
  - Injection site pain [Unknown]
  - Injection site swelling [Unknown]
  - Gait disturbance [Unknown]
  - Injection site bruising [Unknown]
  - Vomiting [Unknown]
  - Abdominal pain [Unknown]
  - Cholecystectomy [Recovered/Resolved]
  - Cyst removal [Recovered/Resolved]
  - Vaginal haemorrhage [Unknown]
  - Pneumonia [Unknown]
  - Dysphonia [Unknown]
  - Pyrexia [Unknown]
  - Thyroid operation [Recovered/Resolved]
  - Cyst removal [Recovered/Resolved]
  - Blood glucose decreased [Unknown]
  - Crohn^s disease [Recovered/Resolved]
  - Cyst [Recovered/Resolved]
